FAERS Safety Report 9111852 (Version 1)
Quarter: 2013Q1

REPORT INFORMATION
  Report Type: Spontaneous
  Country: US (occurrence: US)
  Receive Date: 20130219
  Receipt Date: 20130219
  Transmission Date: 20140127
  Serious: No
  Sender: FDA-Public Use
  Company Number: US-BRISTOL-MYERS SQUIBB COMPANY-16626921

PATIENT
  Age: 51 Year
  Sex: Female
  Weight: 52.15 kg

DRUGS (7)
  1. ORENCIA [Suspect]
     Indication: RHEUMATOID ARTHRITIS
     Dosage: SINCE FEB12. 3 INFUSION?LAST INJ:18MAY2012?PRESCRIPTION #:  55529980570
     Route: 058
     Dates: start: 201202
  2. APIDRA [Concomitant]
     Dosage: INSULIN VIA PUMP
  3. SYNTHROID [Concomitant]
  4. LISINOPRIL [Concomitant]
  5. SERTRALINE [Concomitant]
  6. PRAVASTATINE [Concomitant]
  7. TRAMADOL [Concomitant]

REACTIONS (1)
  - Rheumatoid arthritis [Not Recovered/Not Resolved]
